FAERS Safety Report 7178219-9 (Version None)
Quarter: 2010Q4

REPORT INFORMATION
  Report Type: 
  Country: None (occurrence: None)
  Receive Date: 20101220
  Receipt Date: 20101207
  Transmission Date: 20110411
  Serious: Yes (Hospitalization)
  Sender: FDA-Public Use
  Company Number: DE-AMGEN-DEUCT2010008851

PATIENT

DRUGS (5)
  1. ENBREL [Suspect]
     Indication: RHEUMATOID ARTHRITIS
     Dosage: 25 MG, 2X/WEEK
     Dates: start: 20060501
  2. METHOTREXATE [Concomitant]
     Dosage: 15 MG, UNK
  3. OMEP [Concomitant]
     Dosage: UNK
  4. CALCIUM [Concomitant]
     Dosage: UNK
  5. GLUCOCORTICOIDS [Concomitant]
     Dosage: 5 MG, UNK

REACTIONS (2)
  - PULMONARY EMBOLISM [None]
  - THROMBOSIS [None]
